FAERS Safety Report 9223275 (Version 1)
Quarter: 2013Q2

REPORT INFORMATION
  Report Type: Report from Study
  Country: US (occurrence: US)
  Receive Date: 20130410
  Receipt Date: 20130410
  Transmission Date: 20140414
  Serious: Yes (Other)
  Sender: FDA-Public Use
  Company Number: US-PFIZER INC-2011014627

PATIENT
  Age: 54 Year
  Sex: Female
  Weight: 126 kg

DRUGS (13)
  1. LYRICA [Suspect]
     Indication: NEUROPATHY PERIPHERAL
     Dosage: 75 MG, 2X/DAY
     Route: 048
     Dates: start: 200807, end: 201010
  2. LYRICA [Interacting]
     Indication: PAIN
     Dosage: 75 MG, 2X/DAY
     Route: 048
     Dates: end: 2012
  3. LYRICA [Interacting]
     Indication: NEURALGIA
  4. CYMBALTA [Interacting]
     Indication: NEURALGIA
     Dosage: 60 MG, 1X/DAY
  5. CYMBALTA [Interacting]
     Indication: DEPRESSION
  6. NEXIUM [Concomitant]
     Dosage: UNK
  7. PREDNISONE [Concomitant]
     Dosage: UNK
  8. LASIX [Concomitant]
     Dosage: UNK
  9. POTASSIUM [Concomitant]
     Dosage: UNK
  10. HYDROCODONE [Concomitant]
     Dosage: UNK
  11. XANAX [Concomitant]
     Dosage: UNK
  12. OXYCODONE [Concomitant]
     Dosage: UNK
  13. LANTUS [Concomitant]
     Dosage: UNK

REACTIONS (9)
  - Drug interaction [Unknown]
  - Coma [Unknown]
  - Dysgraphia [Unknown]
  - Local swelling [Unknown]
  - Muscle spasms [Unknown]
  - Diabetic foot infection [Unknown]
  - White blood cell count increased [Unknown]
  - Hypoaesthesia [Unknown]
  - Drug effect incomplete [Unknown]
